FAERS Safety Report 8343209-7 (Version None)
Quarter: 2012Q1

REPORT INFORMATION
  Report Type: 
  Country: None (occurrence: None)
  Receive Date: 20120330
  Receipt Date: 20110628
  Transmission Date: 20120608
  Serious: Yes (Other)
  Sender: FDA-Public Use
  Company Number: PHHY2011US57855

PATIENT
  Age: 73 Year
  Sex: Male

DRUGS (7)
  1. ZOLOFT [Concomitant]
  2. LIPITOR [Concomitant]
  3. EXELON [Suspect]
     Dosage: 4.6 MG, TRANSMAMMARY, 9.5 MG
     Route: 063
     Dates: start: 20100401
  4. EXELON [Suspect]
     Dosage: 4.6 MG, TRANSMAMMARY, 9.5 MG
     Route: 063
     Dates: start: 20100101
  5. PRILOSEC [Concomitant]
  6. METMORFIN [Concomitant]
  7. BLOOD PRESSURE PILL [Concomitant]

REACTIONS (9)
  - MALAISE [None]
  - NAUSEA [None]
  - DYSPNOEA [None]
  - APHAGIA [None]
  - WEIGHT DECREASED [None]
  - WRONG TECHNIQUE IN DRUG USAGE PROCESS [None]
  - ABDOMINAL DISCOMFORT [None]
  - DRUG INEFFECTIVE [None]
  - FATIGUE [None]
